FAERS Safety Report 14290514 (Version 1)
Quarter: 2017Q4

REPORT INFORMATION
  Report Type: Spontaneous
  Country: US (occurrence: US)
  Receive Date: 20171215
  Receipt Date: 20171215
  Transmission Date: 20180321
  Serious: Yes (Other)
  Sender: FDA-Public Use
  Company Number: US-UNITED THERAPEUTICS-UNT-2017-017587

PATIENT
  Age: 38 Year
  Sex: Female

DRUGS (6)
  1. BOSENTAN. [Concomitant]
     Active Substance: BOSENTAN
     Indication: PULMONARY ARTERIAL HYPERTENSION
  2. TADALAFIL [Concomitant]
     Active Substance: TADALAFIL
     Indication: VENTRICULAR SEPTAL DEFECT REPAIR
     Dosage: UNK
     Route: 065
     Dates: start: 2007
  3. BOSENTAN. [Concomitant]
     Active Substance: BOSENTAN
     Indication: VENTRICULAR SEPTAL DEFECT REPAIR
     Dosage: UNK
     Route: 065
     Dates: start: 2005
  4. TADALAFIL [Concomitant]
     Active Substance: TADALAFIL
     Indication: PULMONARY ARTERIAL HYPERTENSION
  5. REMODULIN [Suspect]
     Active Substance: TREPROSTINIL
     Indication: VENTRICULAR SEPTAL DEFECT REPAIR
     Dosage: 0.05 ?G/KG, CONTINUING
     Route: 041
     Dates: start: 2012, end: 201409
  6. REMODULIN [Suspect]
     Active Substance: TREPROSTINIL
     Indication: PULMONARY ARTERIAL HYPERTENSION

REACTIONS (1)
  - Device related infection [Unknown]
